FAERS Safety Report 20055833 (Version 2)
Quarter: 2021Q4

REPORT INFORMATION
  Report Type: Report from Study
  Country: US (occurrence: US)
  Receive Date: 20211111
  Receipt Date: 20211115
  Transmission Date: 20220303
  Serious: Yes (Hospitalization, Other)
  Sender: FDA-Public Use
  Company Number: US-HORIZON THERAPEUTICS-HZN-2021-003698

PATIENT

DRUGS (2)
  1. TEPEZZA [Suspect]
     Active Substance: TEPROTUMUMAB-TRBW
     Indication: Basedow^s disease
     Dosage: UNK
     Route: 065
     Dates: start: 20210601
  2. TEPEZZA [Suspect]
     Active Substance: TEPROTUMUMAB-TRBW
     Indication: Endocrine ophthalmopathy

REACTIONS (5)
  - Diabetes mellitus [Unknown]
  - Deafness [Unknown]
  - Asthenia [Unknown]
  - Dry skin [Unknown]
  - Diarrhoea [Unknown]
